FAERS Safety Report 6741720-3 (Version None)
Quarter: 2010Q2

REPORT INFORMATION
  Report Type: 
  Country: None (occurrence: None)
  Receive Date: 20100526
  Receipt Date: 20100518
  Transmission Date: 20101027
  Serious: Yes (Hospitalization, Other)
  Sender: FDA-Public Use
  Company Number: FR-ELI_LILLY_AND_COMPANY-FR201005004557

PATIENT
  Age: 36 Year
  Sex: Male

DRUGS (7)
  1. ZYPREXA [Suspect]
     Indication: AFFECTIVE DISORDER
     Route: 048
     Dates: start: 20100216, end: 20100305
  2. TEGRETOL [Concomitant]
     Dosage: UNK, UNK
     Dates: start: 20100101, end: 20100101
  3. DEROXAT [Concomitant]
     Indication: AFFECTIVE DISORDER
     Dosage: 20 MG, DAILY (1/D)
     Route: 048
     Dates: start: 20100302, end: 20100316
  4. VALIUM [Concomitant]
     Indication: AFFECTIVE DISORDER
     Dosage: 10 MG, 2/D
     Route: 048
     Dates: start: 20100305, end: 20100310
  5. IMOVANE [Concomitant]
     Indication: SLEEP DISORDER
     Dosage: 3.75 MG, UNK
     Route: 048
     Dates: start: 20100226, end: 20100316
  6. RIVOTRIL [Concomitant]
     Indication: AFFECTIVE DISORDER
     Dosage: 2 MG, DAILY (1/D)
     Route: 048
     Dates: start: 20100101, end: 20100101
  7. RIVOTRIL [Concomitant]
     Dosage: UNK, AS NEEDED
     Dates: start: 20100101

REACTIONS (4)
  - DRUG RASH WITH EOSINOPHILIA AND SYSTEMIC SYMPTOMS [None]
  - HERPES VIRUS INFECTION [None]
  - OFF LABEL USE [None]
  - STAPHYLOCOCCAL IMPETIGO [None]
